FAERS Safety Report 13030125 (Version 1)
Quarter: 2016Q4

REPORT INFORMATION
  Report Type: Report from Study
  Country: BR (occurrence: BR)
  Receive Date: 20161215
  Receipt Date: 20161215
  Transmission Date: 20170207
  Serious: Yes (Hospitalization)
  Sender: FDA-Public Use
  Company Number: PHHY2016BR172422

PATIENT
  Sex: Female
  Weight: 62 kg

DRUGS (1)
  1. EXELON PATCH [Suspect]
     Active Substance: RIVASTIGMINE
     Indication: CEREBRAL DISORDER
     Dosage: 13.3 MG, QD PATCH 15 (CM2)
     Route: 062

REACTIONS (2)
  - Cardiac disorder [Unknown]
  - Product use issue [Unknown]
